FAERS Safety Report 18782573 (Version 1)
Quarter: 2021Q1

REPORT INFORMATION
  Report Type: Spontaneous
  Country: US (occurrence: US)
  Receive Date: 20210125
  Receipt Date: 20210125
  Transmission Date: 20210419
  Serious: No
  Sender: FDA-Public Use
  Company Number: US-ALLERGAN-2032688US

PATIENT
  Sex: Female

DRUGS (1)
  1. RESTASIS [Suspect]
     Active Substance: CYCLOSPORINE
     Indication: DRY EYE
     Dosage: 2 GTT, BID
     Route: 047
     Dates: start: 202008

REACTIONS (5)
  - Product dose omission issue [Unknown]
  - Eye irritation [Unknown]
  - Inadequate aseptic technique in use of product [Unknown]
  - Dry eye [Unknown]
  - Product packaging issue [Unknown]
